FAERS Safety Report 15466541 (Version 3)
Quarter: 2020Q4

REPORT INFORMATION
  Report Type: Spontaneous
  Country: US (occurrence: US)
  Receive Date: 20181004
  Receipt Date: 20201110
  Transmission Date: 20210113
  Serious: Yes (Other)
  Sender: FDA-Public Use
  Company Number: US-AMGEN-USASP2018135707

PATIENT
  Age: 82 Year
  Sex: Female

DRUGS (6)
  1. PROLIA [Suspect]
     Active Substance: DENOSUMAB
     Dosage: 60 MILLIGRAM, Q6MO
     Route: 065
     Dates: start: 20200901
  2. TYLENOL ARTHRITIS PAIN [Concomitant]
     Active Substance: ACETAMINOPHEN
     Indication: OSTEOARTHRITIS
  3. PROLIA [Suspect]
     Active Substance: DENOSUMAB
     Indication: OSTEOPOROSIS POSTMENOPAUSAL
     Dosage: 60 MILLIGRAM, Q6MO
     Route: 065
     Dates: start: 2016
  4. VITAMIN B12 [Concomitant]
     Active Substance: CYANOCOBALAMIN
  5. MULTIVITAMIN + MINERAL [Concomitant]
     Active Substance: MINERALS\VITAMINS
  6. CALCIUM [Concomitant]
     Active Substance: CALCIUM

REACTIONS (23)
  - Swollen tongue [Unknown]
  - Spinal stenosis [Unknown]
  - Intervertebral disc protrusion [Unknown]
  - Scab [Unknown]
  - Mouth swelling [Unknown]
  - Eye swelling [Unknown]
  - Tongue discomfort [Unknown]
  - Rash [Unknown]
  - Hypertension [Unknown]
  - Swelling face [Unknown]
  - Fall [Unknown]
  - Scoliosis [Unknown]
  - Hyperkeratosis [Unknown]
  - Dry mouth [Unknown]
  - Pharyngeal swelling [Unknown]
  - Influenza [Recovered/Resolved]
  - Eye pruritus [Not Recovered/Not Resolved]
  - Arthralgia [Unknown]
  - Myalgia [Unknown]
  - Dyspnoea [Unknown]
  - Blister infected [Unknown]
  - Rheumatoid factor increased [Unknown]
  - Oropharyngeal discomfort [Unknown]

NARRATIVE: CASE EVENT DATE: 202001
